FAERS Safety Report 6061087-6 (Version None)
Quarter: 2009Q1

REPORT INFORMATION
  Report Type: 
  Country: None (occurrence: None)
  Receive Date: 20090202
  Receipt Date: 20090126
  Transmission Date: 20090719
  Serious: Yes (Life-Threatening, Hospitalization)
  Sender: FDA-Public Use
  Company Number: TW-ABBOTT-09P-153-0500677-00

PATIENT
  Age: 1 Year
  Sex: Male

DRUGS (4)
  1. ERYTHROMYCIN [Suspect]
     Indication: BORDETELLA INFECTION
     Dosage: NOT REPORTED
     Dates: start: 20070401
  2. AMPICILLIN [Concomitant]
     Indication: PNEUMONIA
     Dosage: NOT REPORTED
     Dates: start: 20070401
  3. GENTAMICIN [Concomitant]
     Indication: PNEUMONIA
     Dosage: NOT REPORTED
     Dates: start: 20070401
  4. LUMINAL [Concomitant]
     Indication: EPILEPSY
     Dosage: NOT REPORTED
     Dates: start: 20070401

REACTIONS (2)
  - CONDITION AGGRAVATED [None]
  - DRUG INEFFECTIVE [None]
